FAERS Safety Report 7442874-6 (Version None)
Quarter: 2011Q2

REPORT INFORMATION
  Report Type: 
  Country: None (occurrence: None)
  Receive Date: 20110428
  Receipt Date: 20110415
  Transmission Date: 20111010
  Serious: Yes (Other)
  Sender: FDA-Public Use
  Company Number: PHHY2011CH26200

PATIENT
  Sex: Female

DRUGS (13)
  1. SPIRICORT [Concomitant]
  2. SIMCORA [Concomitant]
  3. ACLASTA [Suspect]
     Dosage: 5 MG, UNK
     Route: 042
     Dates: start: 20100101
  4. IMUREK [Concomitant]
     Dosage: 100 MG, QD
  5. ZESTRIL [Concomitant]
  6. BELOC ZOC [Concomitant]
  7. DANCOR [Concomitant]
  8. NEXIUM [Concomitant]
  9. ACLASTA [Suspect]
     Indication: SPINAL FRACTURE
     Dosage: 5 MG
     Route: 042
     Dates: start: 20080101
  10. CALCIMAGON [Concomitant]
  11. TORSEMIDE [Concomitant]
  12. ANESTHETICS [Concomitant]
  13. MARCOUMAR [Concomitant]

REACTIONS (3)
  - POLYCHONDRITIS [None]
  - OSTEONECROSIS OF JAW [None]
  - WEGENER'S GRANULOMATOSIS [None]
